FAERS Safety Report 17117332 (Version 1)
Quarter: 2019Q4

REPORT INFORMATION
  Report Type: Spontaneous
  Country: CA (occurrence: CA)
  Receive Date: 20191205
  Receipt Date: 20191205
  Transmission Date: 20200122
  Serious: Yes (Other)
  Sender: FDA-Public Use
  Company Number: CA-ABBVIE-19K-028-3180658-00

PATIENT
  Sex: Female

DRUGS (5)
  1. LUPRON [Concomitant]
     Active Substance: LEUPROLIDE ACETATE
     Indication: PRODUCT USED FOR UNKNOWN INDICATION
  2. ORILISSA [Suspect]
     Active Substance: ELAGOLIX SODIUM
     Indication: ENDOMETRIOSIS
     Route: 048
  3. ORILISSA [Suspect]
     Active Substance: ELAGOLIX SODIUM
     Route: 048
  4. ORILISSA [Suspect]
     Active Substance: ELAGOLIX SODIUM
     Route: 048
  5. VISANNE [Concomitant]
     Active Substance: DIENOGEST
     Indication: PRODUCT USED FOR UNKNOWN INDICATION

REACTIONS (11)
  - Pelvic pain [Unknown]
  - Dysmenorrhoea [Recovering/Resolving]
  - Pain [Recovering/Resolving]
  - Insomnia [Unknown]
  - Amenorrhoea [Unknown]
  - Metrorrhagia [Unknown]
  - Headache [Unknown]
  - Fatigue [Unknown]
  - Oligomenorrhoea [Unknown]
  - Acne [Unknown]
  - Crying [Unknown]

NARRATIVE: CASE EVENT DATE: 2018
